FAERS Safety Report 22049277 (Version 1)
Quarter: 2023Q1

REPORT INFORMATION
  Report Type: Spontaneous
  Country: US (occurrence: None)
  Receive Date: 20230228
  Receipt Date: 20230228
  Transmission Date: 20230418
  Serious: Yes (Life-Threatening, Hospitalization, Disabling)
  Sender: FDA-Public Use
  Company Number: None

PATIENT
  Age: 62 Year
  Sex: Male
  Weight: 70.65 kg

DRUGS (1)
  1. LUMASON [Suspect]
     Active Substance: SULFUR HEXAFLUORIDE
     Indication: Echocardiogram

REACTIONS (7)
  - Mitral valve incompetence [None]
  - Dyspnoea [None]
  - Unresponsive to stimuli [None]
  - Pulseless electrical activity [None]
  - Dialysis [None]
  - Contrast media reaction [None]
  - Ejection fraction decreased [None]

NARRATIVE: CASE EVENT DATE: 20230120
